FAERS Safety Report 7317808-5 (Version None)
Quarter: 2011Q1

REPORT INFORMATION
  Report Type: 
  Country: None (occurrence: None)
  Receive Date: 20110226
  Receipt Date: 20101214
  Transmission Date: 20110831
  Serious: No
  Sender: FDA-Public Use
  Company Number: US-ALLERGAN-1016239US

PATIENT
  Age: 56 Year
  Sex: Female

DRUGS (3)
  1. BOTOXA? [Suspect]
     Indication: MUSCLE SPASTICITY
  2. BOTOXA? [Suspect]
     Indication: TORTICOLLIS
     Dosage: 235 UNITS, SINGLE
     Route: 030
     Dates: start: 20101124, end: 20101124
  3. BACLOFEN [Concomitant]
     Indication: DYSTONIA
     Dosage: 25 MG, BID
     Route: 048
     Dates: start: 20100601

REACTIONS (7)
  - DYSPHAGIA [None]
  - ASTHENIA [None]
  - DYSPHONIA [None]
  - PYREXIA [None]
  - PAIN [None]
  - INFLUENZA LIKE ILLNESS [None]
  - CHILLS [None]
